FAERS Safety Report 23939933 (Version 1)
Quarter: 2024Q2

REPORT INFORMATION
  Report Type: Spontaneous
  Country: US (occurrence: US)
  Receive Date: 20240605
  Receipt Date: 20240605
  Transmission Date: 20240715
  Serious: No
  Sender: FDA-Public Use
  Company Number: US-MIRUM PHARMACEUTICALS, INC.-US-MIR-24-00084

PATIENT
  Sex: Female
  Weight: 9.977 kg

DRUGS (2)
  1. LIVMARLI [Suspect]
     Active Substance: MARALIXIBAT CHLORIDE
     Indication: Alagille syndrome
     Dosage: 0.3 MILLILITER, QD
     Route: 048
  2. LIVMARLI [Suspect]
     Active Substance: MARALIXIBAT CHLORIDE
     Dosage: 0.45 MILLILITER, QD
     Route: 048

REACTIONS (1)
  - Weight increased [Unknown]
